FAERS Safety Report 12089771 (Version 1)
Quarter: 2016Q1

REPORT INFORMATION
  Report Type: Spontaneous
  Country: US (occurrence: US)
  Receive Date: 20160218
  Receipt Date: 20160218
  Transmission Date: 20160526
  Serious: No
  Sender: FDA-Public Use
  Company Number: US-ABBVIE-15P-163-1398064-00

PATIENT
  Sex: Male

DRUGS (1)
  1. NIACIN ER/SIMVASTATIN [Suspect]
     Active Substance: NIACIN\SIMVASTATIN
     Indication: PRODUCT USED FOR UNKNOWN INDICATION
     Route: 065

REACTIONS (4)
  - Syncope [Unknown]
  - Middle insomnia [Unknown]
  - Burning sensation [Unknown]
  - Feeling hot [Unknown]
